FAERS Safety Report 13149396 (Version 2)
Quarter: 2017Q1

REPORT INFORMATION
  Report Type: Report from Study
  Country: GB (occurrence: GB)
  Receive Date: 20170125
  Receipt Date: 20170217
  Transmission Date: 20170428
  Serious: Yes (Hospitalization, Other)
  Sender: FDA-Public Use
  Company Number: GB-AMGEN-GBRSL2017010347

PATIENT
  Age: 64 Year
  Sex: Male

DRUGS (1)
  1. ARANESP [Suspect]
     Active Substance: DARBEPOETIN ALFA
     Indication: PRODUCT USED FOR UNKNOWN INDICATION
     Dosage: 60 MUG, UNK
     Route: 065

REACTIONS (6)
  - Fatigue [Unknown]
  - Malaise [Unknown]
  - Haemodialysis [Not Recovered/Not Resolved]
  - Nausea [Unknown]
  - Blood count abnormal [Unknown]
  - Foot amputation [Unknown]

NARRATIVE: CASE EVENT DATE: 201612
